FAERS Safety Report 9627497 (Version 1)
Quarter: 2013Q4

REPORT INFORMATION
  Report Type: Spontaneous
  Country: US (occurrence: US)
  Receive Date: 20131016
  Receipt Date: 20131016
  Transmission Date: 20140711
  Serious: No
  Sender: FDA-Public Use
  Company Number: US-009507513-1310USA007234

PATIENT
  Sex: Male

DRUGS (1)
  1. NUVARING [Suspect]
     Dosage: UNK

REACTIONS (2)
  - Penile discharge [Unknown]
  - Exposure via partner [Unknown]
